FAERS Safety Report 15158091 (Version 1)
Quarter: 2018Q3

REPORT INFORMATION
  Report Type: Spontaneous
  Country: FR (occurrence: FR)
  Receive Date: 20180718
  Receipt Date: 20180718
  Transmission Date: 20181010
  Serious: Yes (Death)
  Sender: FDA-Public Use
  Company Number: FR-PERRIGO-18FR006968

PATIENT
  Age: 79 Year

DRUGS (1)
  1. CLOBETASOL PROPIONATE. [Suspect]
     Active Substance: CLOBETASOL PROPIONATE
     Indication: PEMPHIGOID
     Dosage: 30 G PER DAY
     Route: 061

REACTIONS (2)
  - Septic shock [Fatal]
  - Necrotising fasciitis [Fatal]
